FAERS Safety Report 21154197 (Version 1)
Quarter: 2022Q3

REPORT INFORMATION
  Report Type: Spontaneous
  Country: EG (occurrence: EG)
  Receive Date: 20220801
  Receipt Date: 20220801
  Transmission Date: 20221027
  Serious: Yes (Hospitalization, Disabling, Other)
  Sender: FDA-Public Use
  Company Number: EG-NOVOPROD-941406

PATIENT
  Age: 698 Month
  Sex: Male
  Weight: 108 kg

DRUGS (5)
  1. DEPOVIT B12 [Concomitant]
     Indication: Vitamin supplementation
     Dosage: 1 INJECTION EVERY 3 DAYS ( STARTED FROM 5 YEARS AGO )
     Route: 030
  2. INSULIN HUMAN [Suspect]
     Active Substance: INSULIN HUMAN
     Indication: Diabetes mellitus
     Dosage: 50 IU, QD(35 U AT MORNING AND 15 U AT NIGHT)
     Route: 058
  3. CIDOPHAGE [Concomitant]
     Indication: Lipids abnormal
     Dosage: 1 TAB/DAY , NOT REGULARLY ( STARTED FROM 5 YEARS AGO)
     Route: 048
  4. BENFOTIAMINE\CYANOCOBALAMIN\PYRIDOXINE HYDROCHLORIDE [Concomitant]
     Active Substance: BENFOTIAMINE\CYANOCOBALAMIN\PYRIDOXINE HYDROCHLORIDE
     Indication: Vitamin supplementation
     Dosage: 3 TAB/DAY NOT USED REGULARLY  (STARTED FROM 5 YEARS AGO)
     Route: 048
  5. SENALAX EXTRA [Concomitant]
     Dosage: 2 TAB/DAY BEFORE SLEEPING ( STARTED FROM 1 YEAR AGO)
     Route: 048

REACTIONS (3)
  - Intraocular lens implant [Not Recovered/Not Resolved]
  - Retinal operation [Not Recovered/Not Resolved]
  - Visual field defect [Not Recovered/Not Resolved]
